FAERS Safety Report 9317873 (Version 1)
Quarter: 2013Q2

REPORT INFORMATION
  Report Type: Spontaneous
  Country: US (occurrence: US)
  Receive Date: 20130530
  Receipt Date: 20130530
  Transmission Date: 20140414
  Serious: No
  Sender: FDA-Public Use
  Company Number: US-GLAXOSMITHKLINE-A0990291A

PATIENT
  Age: 64 Year
  Sex: Male

DRUGS (4)
  1. VENTOLIN [Suspect]
     Indication: ASTHMA
     Route: 055
  2. ALLOPURINOL [Concomitant]
  3. ADVAIR [Concomitant]
  4. LISINOPRIL [Concomitant]

REACTIONS (6)
  - Nausea [Recovering/Resolving]
  - Asthenia [Unknown]
  - Feeling abnormal [Unknown]
  - Lethargy [Unknown]
  - Hyperhidrosis [Unknown]
  - Product quality issue [Unknown]
